FAERS Safety Report 7309291-0 (Version None)
Quarter: 2011Q1

REPORT INFORMATION
  Report Type: 
  Country: None (occurrence: None)
  Receive Date: 20110223
  Receipt Date: 20110124
  Transmission Date: 20110831
  Serious: No
  Sender: FDA-Public Use
  Company Number: US-BAUSCH-2011BL000427

PATIENT
  Age: 49 Year
  Sex: Male
  Weight: 67 kg

DRUGS (1)
  1. DESMOPRESSIN ACETATE [Suspect]
     Indication: DIABETES INSIPIDUS
     Route: 045
     Dates: start: 20101101

REACTIONS (3)
  - INCORRECT DOSE ADMINISTERED [None]
  - DRUG EFFECT INCREASED [None]
  - ABDOMINAL PAIN UPPER [None]
